FAERS Safety Report 7585655-5 (Version None)
Quarter: 2011Q2

REPORT INFORMATION
  Report Type: 
  Country: None (occurrence: None)
  Receive Date: 20110624
  Receipt Date: 20110610
  Transmission Date: 20111010
  Serious: Yes (Life-Threatening, Hospitalization, Other)
  Sender: FDA-Public Use
  Company Number: AUR-APL-2011-02897

PATIENT
  Age: 73 Year
  Sex: Female
  Weight: 45.3597 kg

DRUGS (1)
  1. METFORMIN HCL [Suspect]
     Indication: TYPE 2 DIABETES MELLITUS
     Dosage: 2000 MG (1000 MG, 2 IN 1 D), ORAL
     Route: 048

REACTIONS (6)
  - SOMNOLENCE [None]
  - LACTIC ACIDOSIS [None]
  - HAEMODIALYSIS [None]
  - RENAL FAILURE ACUTE [None]
  - BLOOD CREATINE PHOSPHOKINASE INCREASED [None]
  - BLOOD POTASSIUM INCREASED [None]
